FAERS Safety Report 14290146 (Version 1)
Quarter: 2017Q4

REPORT INFORMATION
  Report Type: Spontaneous
  Country: US (occurrence: US)
  Receive Date: 20171215
  Receipt Date: 20171215
  Transmission Date: 20180321
  Serious: No
  Sender: FDA-Public Use
  Company Number: US-PFIZER INC-2017535130

PATIENT
  Age: 76 Year
  Sex: Female
  Weight: 72 kg

DRUGS (6)
  1. IBRANCE [Suspect]
     Active Substance: PALBOCICLIB
     Dosage: UNK
     Route: 048
     Dates: start: 2017, end: 20171206
  2. FASLODEX [Concomitant]
     Active Substance: FULVESTRANT
     Dosage: 500 MG, UNK (500MG INJECTED IM, EVERY 2 WEEKS THEN ONCE A MONTH)
     Route: 030
     Dates: start: 20171108
  3. IBRANCE [Suspect]
     Active Substance: PALBOCICLIB
     Indication: BREAST CANCER METASTATIC
     Dosage: 75 MG, CYCLIC (75MG ONE PILL BY MOUTH ONCE A DAY FOR 21 DAYS, OFF FOR 7 DAYS)
     Route: 048
     Dates: start: 20171012, end: 20171025
  4. FASLODEX [Concomitant]
     Active Substance: FULVESTRANT
     Dosage: 500 MG, UNK (500MG INJECTED IM, EVERY 2 WEEKS THEN ONCE A MONTH)
     Route: 030
     Dates: start: 20171122
  5. XGEVA [Concomitant]
     Active Substance: DENOSUMAB
     Indication: BONE CANCER
     Dosage: 120 MG, MONTHLY (120MG INJECTED IV ONCE A MONTH)
     Route: 042
     Dates: start: 201605
  6. FASLODEX [Concomitant]
     Active Substance: FULVESTRANT
     Indication: BREAST CANCER
     Dosage: 500 MG, UNK (500MG INJECTED IM, EVERY 2 WEEKS THEN ONCE A MONTH)
     Route: 030
     Dates: start: 20171025, end: 20171025

REACTIONS (1)
  - White blood cell count decreased [Recovering/Resolving]

NARRATIVE: CASE EVENT DATE: 2017
